FAERS Safety Report 10267552 (Version 1)
Quarter: 2014Q2

REPORT INFORMATION
  Report Type: Spontaneous
  Country: US (occurrence: US)
  Receive Date: 20140630
  Receipt Date: 20140630
  Transmission Date: 20141212
  Serious: No
  Sender: FDA-Public Use
  Company Number: US-PFIZER INC-2014175556

PATIENT
  Age: 56 Year
  Sex: Male
  Weight: 86.17 kg

DRUGS (4)
  1. CELEBREX [Suspect]
     Indication: BONE PAIN
     Dosage: 200 MG, 2X/DAY
     Route: 048
     Dates: start: 20140620, end: 201406
  2. CELEBREX [Suspect]
     Indication: ARTHRITIS
  3. OXYCODONE [Concomitant]
     Dosage: UNK
  4. VITAMIN C [Concomitant]
     Dosage: UNK

REACTIONS (6)
  - Drug intolerance [Unknown]
  - Asthenia [Unknown]
  - Dysgeusia [Unknown]
  - Pain [Unknown]
  - Malaise [Unknown]
  - Nausea [Unknown]
